FAERS Safety Report 4364472-3 (Version None)
Quarter: 2004Q2

REPORT INFORMATION
  Report Type: 
  Country: None (occurrence: None)
  Receive Date: 20040525
  Receipt Date: 20040518
  Transmission Date: 20050107
  Serious: Yes (Hospitalization)
  Sender: FDA-Public Use
  Company Number: AU-GLAXOSMITHKLINE-B0333198A

PATIENT
  Sex: Female
  Weight: 95 kg

DRUGS (1)
  1. AMOXIL [Suspect]
     Route: 065

REACTIONS (5)
  - DYSPNOEA [None]
  - PARAESTHESIA [None]
  - PRURITUS [None]
  - RASH [None]
  - SWELLING [None]
